FAERS Safety Report 8884811 (Version 4)
Quarter: 2014Q1

REPORT INFORMATION
  Report Type: Spontaneous
  Country: US (occurrence: US)
  Receive Date: 20121105
  Receipt Date: 20140217
  Transmission Date: 20141002
  Serious: Yes (Hospitalization, Other)
  Sender: FDA-Public Use
  Company Number: US-AMGEN-USASP2012068744

PATIENT
  Age: 62 Year
  Sex: Female
  Weight: 68.03 kg

DRUGS (4)
  1. ENBREL [Suspect]
     Indication: RHEUMATOID ARTHRITIS
     Dosage: UNK
     Route: 065
  2. REMICADE [Concomitant]
     Indication: RHEUMATOID ARTHRITIS
     Dosage: EVERY SIX WEEKS
     Route: 042
  3. NASONEX [Concomitant]
     Dosage: UNK
  4. FLUTICASONE                        /00972202/ [Concomitant]
     Dosage: UNK

REACTIONS (7)
  - Spinal column stenosis [Unknown]
  - Ankle operation [Unknown]
  - Insomnia [Unknown]
  - Neuralgia [Not Recovered/Not Resolved]
  - Hypothyroidism [Unknown]
  - Osteoarthritis [Unknown]
  - Feeling abnormal [Unknown]
